FAERS Safety Report 12879421 (Version 6)
Quarter: 2017Q3

REPORT INFORMATION
  Report Type: Spontaneous
  Country: JP (occurrence: JP)
  Receive Date: 20161025
  Receipt Date: 20170915
  Transmission Date: 20171127
  Serious: Yes (Other)
  Sender: FDA-Public Use
  Company Number: JP-BRISTOL-MYERS SQUIBB COMPANY-BMS-2016-089163

PATIENT
  Age: 29 Year
  Sex: Male

DRUGS (5)
  1. OPDIVO [Suspect]
     Active Substance: NIVOLUMAB
     Indication: PRODUCT USED FOR UNKNOWN INDICATION
     Dosage: 1 MG/KG, Q4WK
     Route: 041
     Dates: start: 20170217, end: 20170317
  2. OPDIVO [Suspect]
     Active Substance: NIVOLUMAB
     Indication: PRODUCT USED FOR UNKNOWN INDICATION
     Dosage: 1 MG/KG, EVERY 3 WEEKS
     Route: 041
     Dates: start: 20160115, end: 20160318
  3. OPDIVO [Suspect]
     Active Substance: NIVOLUMAB
     Indication: PRODUCT USED FOR UNKNOWN INDICATION
     Dosage: 1 MG/KG, EVERY 3 WEEKS
     Route: 041
     Dates: start: 20160805, end: 20170120
  4. OPDIVO [Suspect]
     Active Substance: NIVOLUMAB
     Indication: PRODUCT USED FOR UNKNOWN INDICATION
     Dosage: 2 MG/KG, EVERY 3 WEEKS
     Route: 041
     Dates: start: 20160411, end: 20160701
  5. OPDIVO [Suspect]
     Active Substance: NIVOLUMAB
     Indication: HODGKIN^S DISEASE
     Dosage: 0.5 MG/KG, EVERY 3 WEEKS
     Route: 041
     Dates: start: 20151023, end: 20151225

REACTIONS (4)
  - Chronic graft versus host disease [Recovered/Resolved]
  - Condition aggravated [Recovered/Resolved]
  - Inappropriate schedule of drug administration [Unknown]
  - Prescribed underdose [Unknown]

NARRATIVE: CASE EVENT DATE: 20151023
